FAERS Safety Report 10494963 (Version 1)
Quarter: 2014Q4

REPORT INFORMATION
  Report Type: Spontaneous
  Country: DE (occurrence: DE)
  Receive Date: 20141003
  Receipt Date: 20141003
  Transmission Date: 20150528
  Serious: Yes (Hospitalization)
  Sender: FDA-Public Use
  Company Number: DE-UCBSA-2014013186

PATIENT
  Age: 70 Year
  Sex: Female

DRUGS (4)
  1. ORFIRIL [Suspect]
     Active Substance: VALPROIC ACID
     Indication: PRODUCT USED FOR UNKNOWN INDICATION
     Dosage: 500, 2TABS , 1000MG,
     Route: 048
     Dates: start: 20140922
  2. ORFIRIL [Suspect]
     Active Substance: VALPROIC ACID
     Dosage: 300, 2TABS, 600 MG
     Route: 048
  3. VIMPAT [Suspect]
     Active Substance: LACOSAMIDE
     Indication: PRODUCT USED FOR UNKNOWN INDICATION
     Dosage: 200, 2TABS, 400 MG
     Route: 048
     Dates: start: 20140922
  4. KEPPRA [Suspect]
     Active Substance: LEVETIRACETAM
     Indication: PRODUCT USED FOR UNKNOWN INDICATION
     Dosage: 1000 MG, 2 TABS, TORAL AMOUNT: 2000 MG
     Route: 048
     Dates: start: 20140922

REACTIONS (3)
  - Accidental exposure to product [Unknown]
  - Tremor [Unknown]
  - Tachycardia [Unknown]

NARRATIVE: CASE EVENT DATE: 20140922
